FAERS Safety Report 8462428 (Version 4)
Quarter: 2012Q4

REPORT INFORMATION
  Report Type: 
  Country: US (occurrence: US)
  Receive Date: 20120316
  Receipt Date: 20121119
  Transmission Date: 20130627
  Serious: Yes (Hospitalization, Other)
  Sender: FDA-Public Use
  Company Number: US-BAYER-2012-024451

PATIENT
  Age: 18 Year
  Sex: Female
  Weight: 52.15 kg

DRUGS (5)
  1. YAZ [Suspect]
     Dosage: UNK
     Dates: start: 200912, end: 201005
  2. DEPO MEDROL [Concomitant]
     Dosage: 80 mg, UNK
  3. TRAMADOL [Concomitant]
     Dosage: 50 mg, UNK
     Route: 048
     Dates: start: 20100428
  4. ULTRAM [Concomitant]
  5. MEDROL [Concomitant]

REACTIONS (19)
  - Pulmonary embolism [Recovered/Resolved]
  - Dyspnoea [Recovered/Resolved]
  - Pain [None]
  - General physical health deterioration [None]
  - Emotional distress [None]
  - Anxiety [None]
  - Panic attack [None]
  - Depression [None]
  - Pulmonary infarction [None]
  - Chest pain [Recovered/Resolved]
  - Chest discomfort [Recovered/Resolved]
  - Back pain [None]
  - Abdominal discomfort [None]
  - Pain in extremity [None]
  - Axillary pain [Recovered/Resolved]
  - Pain [Recovered/Resolved]
  - Headache [None]
  - Nausea [Recovered/Resolved]
  - Off label use [None]
